FAERS Safety Report 23056138 (Version 1)
Quarter: 2023Q4

REPORT INFORMATION
  Report Type: Spontaneous
  Country: None (occurrence: US)
  Receive Date: 20231011
  Receipt Date: 20231011
  Transmission Date: 20240110
  Serious: No
  Sender: FDA-Public Use
  Company Number: US-LGM Pharma Solutions, LLC-2146972

PATIENT

DRUGS (1)
  1. CHENODIOL [Suspect]
     Active Substance: CHENODIOL
     Indication: Xanthomatosis
     Route: 048

REACTIONS (1)
  - Xanthoma [Unknown]
